FAERS Safety Report 9279174 (Version 1)
Quarter: 2013Q2

REPORT INFORMATION
  Report Type: Spontaneous
  Country: US (occurrence: US)
  Receive Date: 20130508
  Receipt Date: 20130508
  Transmission Date: 20140414
  Serious: Yes (Other)
  Sender: FDA-Public Use
  Company Number: US-PFIZER INC-2013137000

PATIENT
  Sex: Female

DRUGS (1)
  1. PREPARATION H [Suspect]
     Dosage: UNK
     Dates: start: 201304

REACTIONS (1)
  - Rectal haemorrhage [Unknown]
